FAERS Safety Report 11261160 (Version 1)
Quarter: 2015Q3

REPORT INFORMATION
  Report Type: Spontaneous
  Country: US (occurrence: US)
  Receive Date: 20150710
  Receipt Date: 20150710
  Transmission Date: 20151125
  Serious: Yes (Other)
  Sender: FDA-Public Use
  Company Number: US-MUNDIPHARMA DS AND PHARMACOVIGILANCE-USA-2015-0120867

PATIENT
  Age: 18 Year
  Sex: Male

DRUGS (2)
  1. BUTRANS [Suspect]
     Active Substance: BUPRENORPHINE
     Indication: PAIN
     Dosage: UNK, WEEKLY
     Route: 062
     Dates: start: 20150120, end: 20150120
  2. MELOXICAM. [Concomitant]
     Active Substance: MELOXICAM
     Indication: PRODUCT USED FOR UNKNOWN INDICATION
     Dosage: 15 MG, PRN DAILY
     Route: 048

REACTIONS (6)
  - Pain [Unknown]
  - Seizure [Recovered/Resolved]
  - Anxiety disorder [Unknown]
  - Hallucination [Unknown]
  - Poor quality sleep [Unknown]
  - Asthenia [Unknown]

NARRATIVE: CASE EVENT DATE: 20150120
